FAERS Safety Report 6904096-4 (Version None)
Quarter: 2010Q3

REPORT INFORMATION
  Report Type: 
  Country: None (occurrence: None)
  Receive Date: 20100804
  Receipt Date: 20090316
  Transmission Date: 20110219
  Serious: Yes (Other)
  Sender: FDA-Public Use
  Company Number: US-PFIZER INC-2008084837

PATIENT
  Sex: Female
  Weight: 104.31 kg

DRUGS (5)
  1. LYRICA [Suspect]
     Indication: PAIN
     Dosage: 225 MG, 1X/DAY
     Route: 048
  2. LYRICA [Suspect]
     Indication: CONVULSION
  3. TOPAMAX [Concomitant]
  4. CLONAZEPAM [Concomitant]
  5. CYMBALTA [Concomitant]

REACTIONS (2)
  - DRUG SCREEN POSITIVE [None]
  - WEIGHT INCREASED [None]
